FAERS Safety Report 14371796 (Version 3)
Quarter: 2018Q1

REPORT INFORMATION
  Report Type: Report from Study
  Country: US (occurrence: US)
  Receive Date: 20180110
  Receipt Date: 20180214
  Transmission Date: 20180509
  Serious: Yes (Death, Hospitalization, Other)
  Sender: FDA-Public Use
  Company Number: US-GILEAD-2017-0312190

PATIENT
  Age: 49 Year
  Sex: Female

DRUGS (11)
  1. VITAMIN D                          /00107901/ [Concomitant]
     Active Substance: ERGOCALCIFEROL
  2. SPIRONOLACTONE. [Concomitant]
     Active Substance: SPIRONOLACTONE
  3. POTASSIUM [Concomitant]
     Active Substance: POTASSIUM
  4. BUMETANIDE. [Concomitant]
     Active Substance: BUMETANIDE
  5. DIGOXIN. [Concomitant]
     Active Substance: DIGOXIN
  6. METOLAZONE. [Concomitant]
     Active Substance: METOLAZONE
  7. LEVOTHYROXINE. [Concomitant]
     Active Substance: LEVOTHYROXINE
  8. WARFARIN [Concomitant]
     Active Substance: WARFARIN
  9. ADCIRCA [Concomitant]
     Active Substance: TADALAFIL
     Indication: PULMONARY ARTERIAL HYPERTENSION
  10. AMBRISENTAN [Suspect]
     Active Substance: AMBRISENTAN
     Indication: PULMONARY ARTERIAL HYPERTENSION
     Dosage: 10 MG, QD
     Route: 048
     Dates: start: 20131220
  11. REMODULIN [Concomitant]
     Active Substance: TREPROSTINIL
     Indication: PULMONARY ARTERIAL HYPERTENSION

REACTIONS (7)
  - Oedema peripheral [Unknown]
  - Ascites [Unknown]
  - Disease progression [Unknown]
  - Fluid retention [Recovered/Resolved]
  - Right ventricular failure [Fatal]
  - Cardiac failure [Unknown]
  - Weight increased [Unknown]

NARRATIVE: CASE EVENT DATE: 20171212
